FAERS Safety Report 9257084 (Version 1)
Quarter: 2013Q1

REPORT INFORMATION
  Report Type: Spontaneous
  Country: US (occurrence: None)
  Receive Date: 20121211
  Receipt Date: 20121211
  Transmission Date: 20140127
  Serious: Yes (Other)
  Sender: FDA-Public Use
  Company Number: FK201201861

PATIENT
  Age: 53 Year
  Sex: Female

DRUGS (3)
  1. CARBOPLATIN [Suspect]
     Indication: OVARIAN CANCER
     Dosage: 651 MG, 1 IN 1 3 WK
     Dates: start: 20091016, end: 20100211
  2. MORAB - 003 [Suspect]
     Indication: OVARIAN CANCER
     Dosage: 1.25 MG, 1 IN 1 WK, INTRAVENOUS (NOT OTHERWISE SPECIFIED)
     Route: 042
     Dates: start: 20091016, end: 20100429
  3. PACLITAXEL (PACLITAXEL) [Concomitant]
     Indication: OVARIAN CANCER
     Dosage: 250 MG, 1 IN 3 WK, INTRAVENOUS (NOT OTHERWISE SPECIFIED)
     Route: 042

REACTIONS (1)
  - Thrombocytopenia [None]
